FAERS Safety Report 15243747 (Version 2)
Quarter: 2018Q3

REPORT INFORMATION
  Report Type: Spontaneous
  Country: US (occurrence: US)
  Receive Date: 20180806
  Receipt Date: 20180904
  Transmission Date: 20181010
  Serious: Yes (Other)
  Sender: FDA-Public Use
  Company Number: US-COOPERSURGICAL, INC.-US-2018CPS032479

PATIENT

DRUGS (1)
  1. PARAGARD T 380A [Suspect]
     Active Substance: COPPER
     Indication: CONTRACEPTION
     Dosage: UNK
     Route: 015
     Dates: start: 20180213, end: 20180705

REACTIONS (4)
  - Device expulsion [Recovered/Resolved]
  - Vaginal discharge [Unknown]
  - Urinary tract infection [Unknown]
  - Muscle spasms [Unknown]

NARRATIVE: CASE EVENT DATE: 201806
